FAERS Safety Report 24958428 (Version 3)
Quarter: 2025Q2

REPORT INFORMATION
  Report Type: Spontaneous
  Country: US (occurrence: US)
  Receive Date: 20250212
  Receipt Date: 20250426
  Transmission Date: 20250717
  Serious: Yes (Hospitalization, Other)
  Sender: TAKEDA
  Company Number: US-TAKEDA-2025TUS014964

PATIENT
  Age: 59 Year
  Sex: Female
  Weight: 75 kg

DRUGS (4)
  1. LIVTENCITY [Suspect]
     Active Substance: MARIBAVIR
     Indication: Cytomegalovirus infection
     Dosage: 400 MILLIGRAM, BID
     Dates: start: 202412
  2. LIVTENCITY [Suspect]
     Active Substance: MARIBAVIR
     Indication: Cytomegalovirus viraemia
     Dosage: UNK UNK, BID
     Dates: start: 20241218, end: 20250311
  3. TACROLIMUS [Concomitant]
     Active Substance: TACROLIMUS
     Dosage: 10 MILLIGRAM, QD
     Dates: start: 2016, end: 20250127
  4. FUROSEMIDE [Concomitant]
     Active Substance: FUROSEMIDE
     Indication: Hypervolaemia
     Dosage: 40 MILLIGRAM, QD
     Dates: start: 202408, end: 20250126

REACTIONS (4)
  - Blood calcium abnormal [Recovered/Resolved]
  - Metabolic acidosis [Recovered/Resolved]
  - Blood magnesium decreased [Recovered/Resolved]
  - Blood creatinine increased [Recovered/Resolved]

NARRATIVE: CASE EVENT DATE: 20250127
